FAERS Safety Report 5085566-3 (Version None)
Quarter: 2006Q3

REPORT INFORMATION
  Report Type: 
  Country: None (occurrence: None)
  Receive Date: 20060822
  Receipt Date: 20060404
  Transmission Date: 20061208
  Serious: Yes (Life-Threatening)
  Sender: FDA-Public Use
  Company Number: US-GLAXOSMITHKLINE-A0600814A

PATIENT
  Age: 19 Year
  Sex: Female
  Weight: 58.6 kg

DRUGS (4)
  1. WELLBUTRIN XL [Suspect]
     Indication: DEPRESSION
     Dosage: 300MG PER DAY
     Route: 048
     Dates: start: 20050301, end: 20060321
  2. IMITREX [Concomitant]
  3. AMBIEN [Concomitant]
  4. BIRTH CONTROL PILLS [Concomitant]

REACTIONS (3)
  - GRAND MAL CONVULSION [None]
  - HYPOXIA [None]
  - POSTICTAL STATE [None]
